FAERS Safety Report 7964003-2 (Version None)
Quarter: 2011Q4

REPORT INFORMATION
  Report Type: 
  Country: None (occurrence: None)
  Receive Date: 20111208
  Receipt Date: 20111128
  Transmission Date: 20120403
  Serious: Yes (Hospitalization, Other)
  Sender: FDA-Public Use
  Company Number: US-BAYER-2011-034664

PATIENT
  Age: 18 Year
  Sex: Female
  Weight: 47.619 kg

DRUGS (11)
  1. ASPIRIN [Concomitant]
     Dosage: UNK
     Dates: start: 20100301
  2. PEG 3350 AND ELECTROLYTES [Concomitant]
  3. CALCIUM CARBONATE [Concomitant]
  4. FLUCONAZOLE [Concomitant]
     Dosage: 150 MG, UNK
  5. YAZ [Suspect]
     Indication: CONTRACEPTION
     Dosage: UNK
     Dates: start: 20070501, end: 20090101
  6. YAZ [Suspect]
     Dosage: UNK
     Dates: start: 20100106, end: 20100202
  7. LOESTRIN 1.5/30 [Concomitant]
     Dosage: UNK
     Dates: start: 20100330, end: 20100617
  8. VALTREX [Concomitant]
  9. ASCORBIC ACID [Concomitant]
     Dosage: UNK
     Dates: start: 19900101
  10. CAMILA [Concomitant]
     Dosage: UNK
     Dates: start: 20100529, end: 20110403
  11. WELCHOL [Concomitant]

REACTIONS (14)
  - TRANSVERSE SINUS THROMBOSIS [None]
  - SUPERIOR SAGITTAL SINUS THROMBOSIS [None]
  - ANHEDONIA [None]
  - GALLBLADDER PAIN [None]
  - ANXIETY [None]
  - FEAR [None]
  - INJURY [None]
  - CHOLECYSTITIS CHRONIC [None]
  - POST CHOLECYSTECTOMY SYNDROME [None]
  - JUGULAR VEIN THROMBOSIS [None]
  - PSYCHOLOGICAL TRAUMA [None]
  - VOMITING [None]
  - PAIN [None]
  - FAECALOMA [None]
